FAERS Safety Report 6996885-5 (Version None)
Quarter: 2010Q3

REPORT INFORMATION
  Report Type: 
  Country: None (occurrence: None)
  Receive Date: 20100918
  Receipt Date: 20090805
  Transmission Date: 20110219
  Serious: No
  Sender: FDA-Public Use
  Company Number: US-WYE-H10474809

PATIENT
  Sex: Female

DRUGS (1)
  1. EFFEXOR XR [Suspect]
     Route: 048
     Dates: end: 20090701

REACTIONS (5)
  - DRUG WITHDRAWAL SYNDROME [None]
  - EYE IRRITATION [None]
  - IRRITABILITY [None]
  - UNEVALUABLE EVENT [None]
  - VISUAL IMPAIRMENT [None]
